FAERS Safety Report 10382575 (Version 2)
Quarter: 2014Q3

REPORT INFORMATION
  Report Type: Spontaneous
  Country: US (occurrence: US)
  Receive Date: 20140813
  Receipt Date: 20140813
  Transmission Date: 20150326
  Serious: No
  Sender: FDA-Public Use
  Company Number: US-SANOFI-AVENTIS-2011SA070490

PATIENT
  Age: 75 Year
  Sex: Female

DRUGS (10)
  1. PROPAFENONE. [Concomitant]
     Active Substance: PROPAFENONE
     Indication: ATRIAL FIBRILLATION
     Dates: start: 201005
  2. POTASSIUM [Concomitant]
     Active Substance: POTASSIUM
  3. CARTIA XT [Concomitant]
     Active Substance: DILTIAZEM HYDROCHLORIDE
  4. LASIX [Concomitant]
     Active Substance: FUROSEMIDE
  5. MULTAQ [Suspect]
     Active Substance: DRONEDARONE
     Indication: ATRIAL FIBRILLATION
     Route: 048
     Dates: start: 201109, end: 201109
  6. DIGOXIN. [Concomitant]
     Active Substance: DIGOXIN
     Indication: ATRIAL FIBRILLATION
     Dates: start: 201005
  7. WARFARIN [Concomitant]
     Active Substance: WARFARIN
     Indication: ATRIAL FIBRILLATION
     Dates: start: 201005
  8. ZOLOFT [Concomitant]
     Active Substance: SERTRALINE HYDROCHLORIDE
  9. DIURETICS [Concomitant]
     Active Substance: UNSPECIFIED INGREDIENT
  10. METOPROLOL [Concomitant]
     Active Substance: METOPROLOL

REACTIONS (10)
  - Nightmare [Recovered/Resolved]
  - Asthenia [Unknown]
  - Chest pain [Recovered/Resolved]
  - Hyperhidrosis [Recovered/Resolved]
  - Disorientation [Recovered/Resolved]
  - Dyspnoea [Recovered/Resolved]
  - Balance disorder [Unknown]
  - Palpitations [Recovered/Resolved]
  - Vision blurred [Unknown]
  - Palpitations [Unknown]

NARRATIVE: CASE EVENT DATE: 201109
